FAERS Safety Report 7424470-X (Version None)
Quarter: 2011Q2

REPORT INFORMATION
  Report Type: 
  Country: None (occurrence: None)
  Receive Date: 20110419
  Receipt Date: 20110414
  Transmission Date: 20111010
  Serious: Yes (Death, Other)
  Sender: FDA-Public Use
  Company Number: AU-GENZYME-THYM-1001254

PATIENT
  Sex: Male
  Weight: 105 kg

DRUGS (2)
  1. THYMOGLOBULIN [Suspect]
     Indication: STEM CELL TRANSPLANT
     Dosage: 2 MG/KG, QD
     Route: 042
     Dates: start: 20090802, end: 20090803
  2. THYMOGLOBULIN [Suspect]
     Dosage: 5 MG/KG, QD
     Route: 042
     Dates: start: 20090804, end: 20090804

REACTIONS (2)
  - INFUSION RELATED REACTION [None]
  - ACUTE LYMPHOCYTIC LEUKAEMIA RECURRENT [None]
